FAERS Safety Report 9800592 (Version 2)
Quarter: 2014Q1

REPORT INFORMATION
  Report Type: Spontaneous
  Country: US (occurrence: US)
  Receive Date: 20140107
  Receipt Date: 20140130
  Transmission Date: 20141002
  Serious: No
  Sender: FDA-Public Use
  Company Number: US-BIOGENIDEC-2013BI122206

PATIENT
  Sex: Female

DRUGS (2)
  1. AVONEX [Suspect]
     Indication: MULTIPLE SCLEROSIS
     Route: 030
     Dates: start: 20120127
  2. AMPYRA [Concomitant]
     Route: 048
     Dates: start: 201304

REACTIONS (3)
  - Adverse event [Unknown]
  - General symptom [Unknown]
  - Headache [Unknown]
